FAERS Safety Report 22279186 (Version 2)
Quarter: 2023Q2

REPORT INFORMATION
  Report Type: Spontaneous
  Country: JP (occurrence: JP)
  Receive Date: 20230503
  Receipt Date: 20230517
  Transmission Date: 20230722
  Serious: No
  Sender: FDA-Public Use
  Company Number: JP-TAKEDA-2023TUS043720

PATIENT
  Age: 12 Year
  Sex: Male

DRUGS (1)
  1. INTUNIV [Suspect]
     Active Substance: GUANFACINE HYDROCHLORIDE
     Indication: Product used for unknown indication
     Dosage: UNK
     Route: 048

REACTIONS (2)
  - Intentional product misuse [Unknown]
  - No adverse event [Unknown]
